FAERS Safety Report 15546483 (Version 1)
Quarter: 2018Q4

REPORT INFORMATION
  Report Type: Not Available
  Country: FR (occurrence: FR)
  Receive Date: 20181024
  Receipt Date: 20181024
  Transmission Date: 20190205
  Serious: Yes (Other)
  Sender: FDA-Public Use
  Company Number: FR-SYNTHON BV-NL01PV18_47570

PATIENT
  Age: 69 Year
  Sex: Female

DRUGS (11)
  1. LEVOCETIRIZINE BIOGARAN [Suspect]
     Active Substance: LEVOCETIRIZINE
     Indication: PRODUCT USED FOR UNKNOWN INDICATION
     Dosage: 2 DF (5MG), QD
     Dates: start: 20181009
  2. SERESTA [Concomitant]
     Active Substance: OXAZEPAM
     Indication: PRODUCT USED FOR UNKNOWN INDICATION
     Dosage: 2 DF, QD
     Route: 048
     Dates: start: 2006
  3. LEVOCETIRIZINE BIOGARAN [Suspect]
     Active Substance: LEVOCETIRIZINE
     Dosage: 1 DF (5MG), QD,  AT NIGHT
     Route: 048
  4. DAFALGAN [Concomitant]
     Active Substance: ACETAMINOPHEN
     Indication: PAIN
     Dosage: UNK
     Route: 065
  5. LAMOTRIGINE BIOGARAN [Suspect]
     Active Substance: LAMOTRIGINE
     Indication: BIPOLAR DISORDER
     Dosage: 2 DF (50MG), QD
     Route: 048
     Dates: start: 201810
  6. NOCTAMIDE [Concomitant]
     Active Substance: LORMETAZEPAM
     Indication: PRODUCT USED FOR UNKNOWN INDICATION
     Dosage: UNK (ONCE AT NIGHT)
     Route: 048
     Dates: start: 2006
  7. ESPERAL [Concomitant]
     Active Substance: DISULFIRAM
     Indication: ALCOHOL WITHDRAWAL SYNDROME
     Dosage: UNK (1/2 DF IN THE MORNING)
     Route: 048
     Dates: start: 2006
  8. SOLUPRED                           /00016201/ [Concomitant]
     Active Substance: PREDNISOLONE
     Indication: PRODUCT USED FOR UNKNOWN INDICATION
     Dosage: UNK
     Route: 065
     Dates: start: 201810
  9. VENTOLINE                          /00139501/ [Concomitant]
     Active Substance: ALBUTEROL
     Indication: PRODUCT USED FOR UNKNOWN INDICATION
     Dosage: UNK (ONCE IN THE MORNING AT 11, AT 3 P.M AND AT NIGHT)
     Route: 065
  10. CITALOPRAM BIOGARAN [Concomitant]
     Active Substance: CITALOPRAM HYDROBROMIDE
     Indication: PRODUCT USED FOR UNKNOWN INDICATION
     Dosage: 1 DF, QD
     Route: 048
     Dates: start: 2006
  11. SPAGULAX [Concomitant]
     Active Substance: PLANTAGO OVATA SEED
     Indication: DIVERTICULUM
     Dosage: 2 DF, QD
     Route: 048

REACTIONS (7)
  - Rash macular [Not Recovered/Not Resolved]
  - Eye swelling [Not Recovered/Not Resolved]
  - Pruritus [Not Recovered/Not Resolved]
  - Dyspnoea [Not Recovered/Not Resolved]
  - Swollen tongue [Not Recovered/Not Resolved]
  - Rash [Not Recovered/Not Resolved]
  - Sense of oppression [Not Recovered/Not Resolved]

NARRATIVE: CASE EVENT DATE: 20181004
